FAERS Safety Report 14391829 (Version 6)
Quarter: 2018Q3

REPORT INFORMATION
  Report Type: Spontaneous
  Country: DE (occurrence: DE)
  Receive Date: 20180116
  Receipt Date: 20180706
  Transmission Date: 20181010
  Serious: Yes (Hospitalization)
  Sender: FDA-Public Use
  Company Number: DE-BAUSCH-BL-2018-001205

PATIENT
  Age: 37 Year
  Sex: Female
  Weight: 95 kg

DRUGS (4)
  1. IBUPROFEN. [Concomitant]
     Active Substance: IBUPROFEN
     Indication: HEADACHE
     Route: 065
  2. ZOVIRAX [Suspect]
     Active Substance: ACYCLOVIR
     Indication: HERPES VIRUS INFECTION
     Dosage: DRUG NOT ADMINISTERED,ROUTE:TOPICAL
     Route: 061
  3. ZINBRYTA [Suspect]
     Active Substance: DACLIZUMAB
     Indication: RELAPSING-REMITTING MULTIPLE SCLEROSIS
     Dosage: (150 MG 1 MONTH)
     Route: 058
     Dates: start: 20170209
  4. CEFUROXIME. [Suspect]
     Active Substance: CEFUROXIME
     Indication: LYMPHADENOPATHY
     Route: 050
     Dates: start: 20170921, end: 20171001

REACTIONS (2)
  - Herpes virus infection [Recovered/Resolved]
  - Lymphadenopathy [Recovered/Resolved]

NARRATIVE: CASE EVENT DATE: 20170921
